FAERS Safety Report 5599585-1 (Version None)
Quarter: 2008Q1

REPORT INFORMATION
  Report Type: 
  Country: None (occurrence: None)
  Receive Date: 20080123
  Receipt Date: 20080115
  Transmission Date: 20080703
  Serious: Yes (Hospitalization)
  Sender: FDA-Public Use
  Company Number: PHBS2008IE00582

PATIENT
  Sex: Male

DRUGS (2)
  1. DIOVAN [Suspect]
     Dosage: 80 MG/DAY
     Route: 048
     Dates: start: 20071001
  2. CENTYL [Concomitant]

REACTIONS (4)
  - CORNEAL TRANSPLANT [None]
  - DEPRESSION [None]
  - HERPES SIMPLEX OPHTHALMIC [None]
  - ULCERATIVE KERATITIS [None]
